FAERS Safety Report 13800454 (Version 1)
Quarter: 2017Q3

REPORT INFORMATION
  Report Type: Spontaneous
  Country: US (occurrence: US)
  Receive Date: 20170727
  Receipt Date: 20170727
  Transmission Date: 20171127
  Serious: Yes (Other)
  Sender: FDA-Public Use
  Company Number: US-MYLANLABS-2015M1019733

PATIENT
  Sex: Female

DRUGS (4)
  1. CALCIUM                            /00060701/ [Concomitant]
     Active Substance: CALCIUM
     Dosage: UNK
  2. LEVOTHYROXINE. [Suspect]
     Active Substance: LEVOTHYROXINE
     Indication: HYPOTHYROIDISM
     Dosage: 88 ?G, QD
     Route: 048
     Dates: start: 2007, end: 201405
  3. VITAMIN D                          /00107901/ [Concomitant]
     Active Substance: ERGOCALCIFEROL
     Dosage: UNK
  4. MULTIVITAMIN                       /00097801/ [Concomitant]
     Active Substance: VITAMINS
     Dosage: 88 ?G, QD
     Route: 048

REACTIONS (1)
  - Hyperthyroidism [Recovered/Resolved]
